FAERS Safety Report 7643044-9 (Version None)
Quarter: 2011Q3

REPORT INFORMATION
  Report Type: 
  Country: None (occurrence: None)
  Receive Date: 20110728
  Receipt Date: 20110722
  Transmission Date: 20111222
  Serious: Yes (Death)
  Sender: FDA-Public Use
  Company Number: US-CELGENEUS-163-21880-11072708

PATIENT
  Age: 54 Year
  Sex: Male

DRUGS (14)
  1. METHYLPHENIDATE [Concomitant]
     Route: 065
  2. ACYCLOVIR [Concomitant]
     Route: 065
  3. PRAVASTATIN [Concomitant]
     Route: 065
  4. LEVITRA [Concomitant]
     Route: 065
  5. DEXAMETHASONE [Concomitant]
     Indication: MULTIPLE MYELOMA
     Route: 065
     Dates: start: 20100201
  6. CYCLOBENZAPRINE [Concomitant]
     Route: 065
  7. DEXAMETHASONE [Concomitant]
     Route: 065
     Dates: start: 20110201
  8. VELCADE [Concomitant]
     Route: 065
     Dates: start: 20110201
  9. REVLIMID [Suspect]
     Indication: MULTIPLE MYELOMA
     Dosage: 25 MILLIGRAM
     Route: 048
     Dates: start: 20100201, end: 20110401
  10. FENTANYL [Concomitant]
     Route: 065
  11. ATRIPLA [Concomitant]
     Route: 065
  12. MORPHINE [Concomitant]
     Route: 065
  13. DRONABINOL [Concomitant]
     Route: 065
  14. VELCADE [Concomitant]
     Indication: MULTIPLE MYELOMA
     Route: 065
     Dates: start: 20100201

REACTIONS (3)
  - PERFORMANCE STATUS DECREASED [None]
  - BETA 2 MICROGLOBULIN INCREASED [None]
  - DEATH [None]
